FAERS Safety Report 15701297 (Version 13)
Quarter: 2019Q3

REPORT INFORMATION
  Report Type: Report from Study
  Country: US (occurrence: US)
  Receive Date: 20181207
  Receipt Date: 20190923
  Transmission Date: 20191004
  Serious: Yes (Hospitalization, Other)
  Sender: FDA-Public Use
  Company Number: US-ACTELION-A-NJ2018-182746

PATIENT
  Age: 44 Year
  Sex: Female
  Weight: 95.69 kg

DRUGS (5)
  1. SILDENAFIL CITRATE. [Concomitant]
     Active Substance: SILDENAFIL CITRATE
     Dosage: UNK
  2. UPTRAVI [Suspect]
     Active Substance: SELEXIPAG
     Indication: PULMONARY ARTERIAL HYPERTENSION
     Dosage: 200 MCG, BID
     Route: 048
  3. OPSUMIT [Suspect]
     Active Substance: MACITENTAN
     Indication: PULMONARY ARTERIAL HYPERTENSION
     Dosage: 10 MG, QD
     Route: 048
     Dates: start: 20150215
  4. UPTRAVI [Suspect]
     Active Substance: SELEXIPAG
     Dosage: 400 MCG, BID
     Route: 048
  5. UPTRAVI [Suspect]
     Active Substance: SELEXIPAG
     Dosage: 200 MCG, BID
     Route: 048
     Dates: end: 20190822

REACTIONS (38)
  - Scleroderma [Unknown]
  - Disease complication [Unknown]
  - Nausea [Unknown]
  - Oesophageal ulcer [Unknown]
  - Oesophagogastroduodenoscopy [Recovered/Resolved with Sequelae]
  - Gastrooesophageal reflux disease [Unknown]
  - Feeding disorder [Unknown]
  - Oesophageal stenosis [Recovered/Resolved]
  - Post procedural complication [Recovered/Resolved]
  - Wheezing [Unknown]
  - Pulmonary hypertension [Unknown]
  - Blood pressure decreased [Unknown]
  - Palpitations [Unknown]
  - Pharyngeal swelling [Unknown]
  - Oesophageal dilatation [Recovered/Resolved]
  - Dehydration [Unknown]
  - Oesophagitis [Unknown]
  - Haemoglobin decreased [Unknown]
  - Vomiting [Unknown]
  - Presyncope [Unknown]
  - Dysphagia [Unknown]
  - Gastrointestinal tube insertion [Recovered/Resolved]
  - Haematochezia [Unknown]
  - Dyspnoea [Unknown]
  - Malaise [Unknown]
  - Pulmonary arterial hypertension [Unknown]
  - Abdominal pain upper [Not Recovered/Not Resolved]
  - Oxygen saturation decreased [Unknown]
  - Headache [Unknown]
  - Feeding tube user [Unknown]
  - Pain in jaw [Not Recovered/Not Resolved]
  - Failure to thrive [Unknown]
  - Disease progression [Unknown]
  - Haematemesis [Unknown]
  - Functional gastrointestinal disorder [Unknown]
  - Condition aggravated [Unknown]
  - Gastric ulcer [Unknown]
  - Chest pain [Unknown]

NARRATIVE: CASE EVENT DATE: 20190401
